FAERS Safety Report 23119132 (Version 1)
Quarter: 2023Q4

REPORT INFORMATION
  Report Type: Spontaneous
  Country: US (occurrence: US)
  Receive Date: 20231028
  Receipt Date: 20231028
  Transmission Date: 20240109
  Serious: Yes (Other)
  Sender: FDA-Public Use
  Company Number: US-drreddys-LIT/USA/23/0180741

PATIENT
  Age: 54 Year
  Sex: Male

DRUGS (46)
  1. ATORVASTATIN [Suspect]
     Active Substance: ATORVASTATIN
     Indication: Middle cerebral artery stroke
  2. ATORVASTATIN [Suspect]
     Active Substance: ATORVASTATIN
     Indication: Neuropathy peripheral
  3. ATORVASTATIN [Suspect]
     Active Substance: ATORVASTATIN
     Indication: Alcohol use disorder
  4. ATORVASTATIN [Suspect]
     Active Substance: ATORVASTATIN
     Indication: Major depression
  5. LORAZEPAM [Suspect]
     Active Substance: LORAZEPAM
     Indication: Alcohol withdrawal syndrome
     Route: 042
  6. LORAZEPAM [Suspect]
     Active Substance: LORAZEPAM
     Indication: Middle cerebral artery stroke
  7. LORAZEPAM [Suspect]
     Active Substance: LORAZEPAM
     Indication: Neuropathy peripheral
  8. LORAZEPAM [Suspect]
     Active Substance: LORAZEPAM
     Indication: Alcohol use disorder
  9. LORAZEPAM [Suspect]
     Active Substance: LORAZEPAM
     Indication: Major depression
  10. METOPROLOL SUCCINATE [Suspect]
     Active Substance: METOPROLOL SUCCINATE
     Indication: Middle cerebral artery stroke
  11. METOPROLOL SUCCINATE [Suspect]
     Active Substance: METOPROLOL SUCCINATE
     Indication: Neuropathy peripheral
  12. METOPROLOL SUCCINATE [Suspect]
     Active Substance: METOPROLOL SUCCINATE
     Indication: Alcohol use disorder
  13. METOPROLOL SUCCINATE [Suspect]
     Active Substance: METOPROLOL SUCCINATE
     Indication: Major depression
  14. ASPIRIN [Suspect]
     Active Substance: ASPIRIN
     Indication: Middle cerebral artery stroke
  15. ASPIRIN [Suspect]
     Active Substance: ASPIRIN
     Indication: Neuropathy peripheral
  16. ASPIRIN [Suspect]
     Active Substance: ASPIRIN
     Indication: Alcohol use disorder
  17. ASPIRIN [Suspect]
     Active Substance: ASPIRIN
     Indication: Major depression
  18. GABAPENTIN [Suspect]
     Active Substance: GABAPENTIN
     Indication: Neuropathy peripheral
  19. GABAPENTIN [Suspect]
     Active Substance: GABAPENTIN
     Indication: Middle cerebral artery stroke
  20. GABAPENTIN [Suspect]
     Active Substance: GABAPENTIN
     Indication: Alcohol use disorder
  21. GABAPENTIN [Suspect]
     Active Substance: GABAPENTIN
     Indication: Major depression
  22. DULOXETINE [Suspect]
     Active Substance: DULOXETINE
     Indication: Middle cerebral artery stroke
  23. DULOXETINE [Suspect]
     Active Substance: DULOXETINE
     Indication: Neuropathy peripheral
  24. DULOXETINE [Suspect]
     Active Substance: DULOXETINE
     Indication: Alcohol use disorder
  25. DULOXETINE [Suspect]
     Active Substance: DULOXETINE
     Indication: Major depression
  26. ACETAMINOPHEN [Suspect]
     Active Substance: ACETAMINOPHEN
     Indication: Middle cerebral artery stroke
  27. ACETAMINOPHEN [Suspect]
     Active Substance: ACETAMINOPHEN
     Indication: Neuropathy peripheral
  28. ACETAMINOPHEN [Suspect]
     Active Substance: ACETAMINOPHEN
     Indication: Alcohol use disorder
  29. ACETAMINOPHEN [Suspect]
     Active Substance: ACETAMINOPHEN
     Indication: Major depression
  30. NALTREXONE [Suspect]
     Active Substance: NALTREXONE
     Indication: Alcohol use disorder
  31. NALTREXONE [Suspect]
     Active Substance: NALTREXONE
     Indication: Middle cerebral artery stroke
  32. NALTREXONE [Suspect]
     Active Substance: NALTREXONE
     Indication: Neuropathy peripheral
  33. NALTREXONE [Suspect]
     Active Substance: NALTREXONE
     Indication: Alcohol use disorder
  34. NALTREXONE [Suspect]
     Active Substance: NALTREXONE
     Indication: Major depression
  35. ACAMPROSATE [Suspect]
     Active Substance: ACAMPROSATE
     Indication: Alcohol use disorder
     Route: 048
  36. ACAMPROSATE [Suspect]
     Active Substance: ACAMPROSATE
     Indication: Middle cerebral artery stroke
  37. ACAMPROSATE [Suspect]
     Active Substance: ACAMPROSATE
     Indication: Neuropathy peripheral
  38. ACAMPROSATE [Suspect]
     Active Substance: ACAMPROSATE
     Indication: Alcohol use disorder
  39. ACAMPROSATE [Suspect]
     Active Substance: ACAMPROSATE
     Indication: Major depression
  40. CHLORDIAZEPOXIDE [Suspect]
     Active Substance: CHLORDIAZEPOXIDE
     Indication: Alcohol withdrawal syndrome
     Route: 048
  41. CHLORDIAZEPOXIDE [Suspect]
     Active Substance: CHLORDIAZEPOXIDE
     Indication: Middle cerebral artery stroke
  42. CHLORDIAZEPOXIDE [Suspect]
     Active Substance: CHLORDIAZEPOXIDE
     Indication: Neuropathy peripheral
  43. CHLORDIAZEPOXIDE [Suspect]
     Active Substance: CHLORDIAZEPOXIDE
     Indication: Alcohol use disorder
  44. CHLORDIAZEPOXIDE [Suspect]
     Active Substance: CHLORDIAZEPOXIDE
     Indication: Major depression
  45. THIAMINE [Concomitant]
     Active Substance: THIAMINE
     Indication: Detoxification
  46. INSULIN NOS [Concomitant]
     Active Substance: INSULIN NOS
     Indication: Diabetes mellitus

REACTIONS (3)
  - Delirium [Unknown]
  - Aphasia [Unknown]
  - Product use in unapproved indication [Unknown]
